FAERS Safety Report 11436326 (Version 1)
Quarter: 2015Q3

REPORT INFORMATION
  Report Type: Spontaneous
  Country: US (occurrence: US)
  Receive Date: 20150821
  Receipt Date: 20150821
  Transmission Date: 20151125
  Serious: No
  Sender: FDA-Public Use
  Company Number: US-ELI_LILLY_AND_COMPANY-US201402003400

PATIENT
  Sex: Male

DRUGS (4)
  1. CIALIS [Suspect]
     Active Substance: TADALAFIL
     Indication: HEPATIC STEATOSIS
     Dosage: 5 MG, UNKNOWN
     Route: 065
     Dates: start: 201312
  2. CIALIS [Suspect]
     Active Substance: TADALAFIL
     Indication: WEIGHT DECREASED
  3. CINNAMON                           /01647501/ [Suspect]
     Active Substance: CINNAMON
     Indication: PRODUCT USED FOR UNKNOWN INDICATION
     Dosage: UNK
     Route: 065
  4. VICTOZA [Suspect]
     Active Substance: LIRAGLUTIDE
     Indication: PRODUCT USED FOR UNKNOWN INDICATION
     Dosage: UNK
     Route: 065

REACTIONS (5)
  - Aspartate aminotransferase decreased [Unknown]
  - Weight decreased [Unknown]
  - Off label use [Unknown]
  - Alanine aminotransferase decreased [Unknown]
  - Decreased appetite [Unknown]
